FAERS Safety Report 16010883 (Version 2)
Quarter: 2019Q4

REPORT INFORMATION
  Report Type: Spontaneous
  Country: JP (occurrence: JP)
  Receive Date: 20190227
  Receipt Date: 20191007
  Transmission Date: 20200122
  Serious: No
  Sender: FDA-Public Use
  Company Number: JP-LUPIN PHARMACEUTICALS INC.-2019-00868

PATIENT
  Age: 81 Year
  Sex: Male

DRUGS (1)
  1. METOCLOPRAMIDE. [Suspect]
     Active Substance: METOCLOPRAMIDE
     Indication: ABDOMINAL DISCOMFORT
     Dosage: UNK
     Route: 065

REACTIONS (2)
  - Tremor [Unknown]
  - Parkinsonism [Recovered/Resolved]
